FAERS Safety Report 8876911 (Version 3)
Quarter: 2013Q1

REPORT INFORMATION
  Report Type: Spontaneous
  Country: US (occurrence: US)
  Receive Date: 20121029
  Receipt Date: 20130102
  Transmission Date: 20140127
  Serious: Yes (Other)
  Sender: FDA-Public Use
  Company Number: US-PFIZER INC-2012269006

PATIENT
  Sex: 0

DRUGS (4)
  1. IBUPROFEN [Suspect]
     Dosage: UNK
     Route: 048
  2. CELECOXIB [Suspect]
     Route: 048
  3. NAPROXEN SODIUM [Suspect]
     Dosage: UNK
     Route: 048
  4. ACETYLSALICYLIC ACID [Suspect]
     Dosage: UNK
     Route: 048

REACTIONS (8)
  - Large intestinal ulcer [Unknown]
  - Gastrointestinal disorder [Unknown]
  - Colon neoplasm [Unknown]
  - Intestinal ischaemia [Unknown]
  - Gastrointestinal inflammation [Unknown]
  - Colitis [Unknown]
  - Abdominal pain [Unknown]
  - Change of bowel habit [Unknown]
